FAERS Safety Report 8498801 (Version 9)
Quarter: 2013Q2

REPORT INFORMATION
  Report Type: Spontaneous
  Country: BR (occurrence: BR)
  Receive Date: 20120409
  Receipt Date: 20130619
  Transmission Date: 20140414
  Serious: Yes (Other)
  Sender: FDA-Public Use
  Company Number: BR-AMGEN-BRASP2012020644

PATIENT
  Age: 57 Year
  Sex: Male
  Weight: 79 kg

DRUGS (11)
  1. ENBREL [Suspect]
     Indication: ANKYLOSING SPONDYLITIS
     Dosage: 50 MG, WEEKLY
     Route: 058
     Dates: start: 20120209, end: 201209
  2. ENBREL [Suspect]
     Dosage: 50 MG, QWK
     Route: 058
     Dates: start: 201209, end: 201210
  3. ENBREL [Suspect]
     Dosage: 50 MG, QWK
     Route: 058
     Dates: start: 201212
  4. PANTOPRAZOL [Concomitant]
     Indication: GASTRIC DISORDER
     Dosage: 40 MG, UNK
  5. MESALAZINE [Concomitant]
     Indication: COLITIS ULCERATIVE
     Dosage: 500 MG, UNK
  6. ALGINAC [Concomitant]
     Indication: PAIN
     Dosage: 1000 MCG AS NEEDED
  7. RIVOTRIL [Concomitant]
     Indication: INSOMNIA
     Dosage: 1 MG, AS NEEDED
  8. RIVOTRIL [Concomitant]
     Dosage: UNK
  9. OLCADIL [Concomitant]
     Indication: ANXIETY
     Dosage: 2 MG, UNK
  10. OLCADIL [Concomitant]
     Indication: NERVOUSNESS
     Dosage: UNK
  11. OLCADIL [Concomitant]
     Indication: AGITATION
     Dosage: UNK

REACTIONS (11)
  - Shoulder arthroplasty [Unknown]
  - Spinal osteoarthritis [Unknown]
  - White blood cell count decreased [Unknown]
  - Spinal pain [Unknown]
  - Drug administration error [Unknown]
  - Arthropathy [Unknown]
  - Spondyloarthropathy [Unknown]
  - Liver disorder [Unknown]
  - Enthesopathy [Unknown]
  - Injection site pain [Unknown]
  - Drug ineffective [Unknown]
